FAERS Safety Report 10472458 (Version 2)
Quarter: 2017Q1

REPORT INFORMATION
  Report Type: Spontaneous
  Country: US (occurrence: US)
  Receive Date: 20140924
  Receipt Date: 20170215
  Transmission Date: 20170428
  Serious: Yes (Life-Threatening, Hospitalization, Other)
  Sender: FDA-Public Use
  Company Number: US-RANBAXY-2014US-85608

PATIENT
  Age: 9 Year
  Sex: Female

DRUGS (1)
  1. CLINDAMYCIN. [Suspect]
     Active Substance: CLINDAMYCIN
     Indication: PHARYNGITIS STREPTOCOCCAL
     Dosage: UNK
     Route: 065

REACTIONS (5)
  - Clostridial sepsis [Recovering/Resolving]
  - Colitis ischaemic [Recovered/Resolved]
  - Gas gangrene [Recovered/Resolved]
  - Clostridium difficile colitis [Recovered/Resolved]
  - Muscle necrosis [Recovered/Resolved]
